FAERS Safety Report 25605829 (Version 1)
Quarter: 2025Q3

REPORT INFORMATION
  Report Type: Spontaneous
  Country: US (occurrence: US)
  Receive Date: 20250725
  Receipt Date: 20250725
  Transmission Date: 20251021
  Serious: No
  Sender: SANOFI AVENTIS
  Company Number: US-SA-2025SA208475

PATIENT
  Age: 56 Year
  Sex: Male

DRUGS (3)
  1. DUPIXENT [Suspect]
     Active Substance: DUPILUMAB
     Indication: Eczema
     Route: 058
     Dates: start: 20250508, end: 20250508
  2. DUPIXENT [Suspect]
     Active Substance: DUPILUMAB
     Dosage: 300 MG, QOW
     Route: 058
     Dates: start: 20250522
  3. COSENTYX [Concomitant]
     Active Substance: SECUKINUMAB

REACTIONS (10)
  - Psoriasis [Not Recovered/Not Resolved]
  - Loss of personal independence in daily activities [Unknown]
  - Mood altered [Unknown]
  - Formication [Unknown]
  - Erythema [Unknown]
  - Pruritus [Unknown]
  - Insomnia [Unknown]
  - Eczema [Unknown]
  - Injection site pain [Not Recovered/Not Resolved]
  - Skin swelling [Not Recovered/Not Resolved]

NARRATIVE: CASE EVENT DATE: 20250101
